FAERS Safety Report 8075463-3 (Version None)
Quarter: 2012Q1

REPORT INFORMATION
  Report Type: 
  Country: None (occurrence: None)
  Receive Date: 20120127
  Receipt Date: 20120118
  Transmission Date: 20120608
  Serious: Yes (Hospitalization, Other)
  Sender: FDA-Public Use
  Company Number: JP-PFIZER INC-2011296748

PATIENT
  Age: 9 Year
  Sex: Female

DRUGS (26)
  1. CLEITON [Concomitant]
  2. CEFTAZIDIME SODIUM [Concomitant]
  3. METHOTREXATE SODIUM [Suspect]
     Dosage: 12 MG, 1X/DAY
     Route: 042
     Dates: start: 20111017, end: 20111018
  4. PREDNISOLONE [Concomitant]
     Indication: T-CELL LYMPHOMA
     Dosage: 27 MG, 1X/DAY
     Route: 042
     Dates: start: 20110826
  5. MERCAPTOPURINE [Concomitant]
     Indication: T-CELL LYMPHOMA
     Dosage: 55 MG/DAY
     Route: 048
  6. PREDNISOLONE [Concomitant]
     Dosage: 60 MG, 1X/DAY
     Route: 042
  7. MERCAPTOPURINE [Concomitant]
     Dosage: 23 MG, UNK
     Route: 048
  8. CYTARABINE [Concomitant]
  9. METHOTREXATE SODIUM [Suspect]
     Dosage: 12 MG, 1X/DAY
     Route: 042
     Dates: start: 20111121, end: 20111121
  10. CYTARABINE [Suspect]
     Dosage: 30 MG, UNK
     Route: 037
  11. METHOTREXATE SODIUM [Suspect]
     Indication: LYMPHOMA
     Dosage: 12 MG, UNK
     Route: 037
     Dates: start: 20111003
  12. METHYLPREDNISOLONE SODIUM SUCCINATE [Suspect]
     Indication: T-CELL LYMPHOMA
     Dosage: 25 MG, UNK
     Route: 037
     Dates: start: 20110826
  13. METHYLPREDNISOLONE SODIUM SUCCINATE [Suspect]
     Dosage: UNK
     Route: 039
  14. CYTARABINE [Suspect]
     Indication: T-CELL LYMPHOMA
     Dosage: 30 MG, UNK
     Route: 037
     Dates: start: 20110826
  15. VANCOMYCIN [Concomitant]
  16. MICAFUNGIN SODIUM [Concomitant]
  17. CYCLOPHOSPHAMIDE [Concomitant]
     Indication: T-CELL LYMPHOMA
     Dosage: 930 MG/DAY
     Route: 041
  18. CYCLOPHOSPHAMIDE [Concomitant]
     Dosage: 930 MG/DAY
     Route: 041
  19. SULFAMETHOXAZOLE [Concomitant]
  20. LEUKERIN [Concomitant]
  21. METHOTREXATE SODIUM [Suspect]
     Indication: T-CELL LYMPHOMA
     Dosage: 12 MG, UNK
     Route: 037
     Dates: start: 20110826
  22. METHOTREXATE SODIUM [Suspect]
     Dosage: 4650 MG, 1X/DAY
     Route: 042
     Dates: start: 20111121, end: 20111122
  23. CYTARABINE [Suspect]
     Dosage: 68 MG/DAY
     Route: 041
  24. CYCLOPHOSPHAMIDE [Concomitant]
     Dosage: 455 MG/DAY
     Route: 041
  25. KYTRIL [Concomitant]
  26. ARMODAFINIL [Concomitant]

REACTIONS (1)
  - LEUKOENCEPHALOPATHY [None]
